FAERS Safety Report 8251611-7 (Version None)
Quarter: 2012Q2

REPORT INFORMATION
  Report Type: 
  Country: None (occurrence: None)
  Receive Date: 20120402
  Receipt Date: 20120215
  Transmission Date: 20120825
  Serious: No
  Sender: FDA-Public Use
  Company Number: US-ABBOTT-12P-163-0908398-00

PATIENT
  Sex: Male
  Weight: 88.53 kg

DRUGS (5)
  1. METFORMIN HCL [Concomitant]
     Indication: DIABETES MELLITUS
  2. UNKNOWN MEDICATION [Concomitant]
     Indication: BLOOD PRESSURE
  3. ANDROGEL [Suspect]
     Indication: BLOOD TESTOSTERONE DECREASED
     Dosage: 2 PUMPS PER DAY
     Dates: start: 20120201
  4. UNKNOWN MEDICATION [Concomitant]
     Indication: ANALGESIC INTERVENTION SUPPORTIVE THERAPY
  5. MULTI-VITAMIN [Concomitant]
     Indication: VITAMIN SUPPLEMENTATION

REACTIONS (8)
  - DIZZINESS [None]
  - TREMOR [None]
  - FLUSHING [None]
  - FATIGUE [None]
  - HEADACHE [None]
  - FEELING HOT [None]
  - ANXIETY [None]
  - POLLAKIURIA [None]
